FAERS Safety Report 6062669-8 (Version None)
Quarter: 2009Q1

REPORT INFORMATION
  Report Type: 
  Country: None (occurrence: None)
  Receive Date: 20090129
  Receipt Date: 20090115
  Transmission Date: 20090719
  Serious: Yes (Hospitalization)
  Sender: FDA-Public Use
  Company Number: DSJ-2009-00594

PATIENT
  Age: 73 Year
  Sex: Female

DRUGS (2)
  1. OLMESARTAN MEDOXOMIL [Suspect]
     Indication: HYPERTENSION
     Dosage: 10 MG,PER ORAL
     Route: 048
     Dates: start: 20080221, end: 20080919
  2. NORVASC [Concomitant]

REACTIONS (4)
  - ASPARTATE AMINOTRANSFERASE INCREASED [None]
  - BLOOD BILIRUBIN INCREASED [None]
  - HEPATIC FUNCTION ABNORMAL [None]
  - JAUNDICE [None]
